FAERS Safety Report 6636886-X (Version None)
Quarter: 2010Q1

REPORT INFORMATION
  Report Type: 
  Country: None (occurrence: None)
  Receive Date: 20100316
  Receipt Date: 20100305
  Transmission Date: 20100710
  Serious: Yes (Hospitalization, Other)
  Sender: FDA-Public Use
  Company Number: PHEH2010US02935

PATIENT
  Age: 85 Year
  Sex: Female

DRUGS (2)
  1. EXELON [Suspect]
     Dosage: UNK
     Dates: start: 19850101, end: 19860101
  2. EXELON [Suspect]
     Dosage: UNK
     Dates: start: 19850101, end: 19860101

REACTIONS (4)
  - DYSPNOEA [None]
  - PARKINSON'S DISEASE [None]
  - SOMNOLENCE [None]
  - UNRESPONSIVE TO STIMULI [None]
